FAERS Safety Report 10152256 (Version 2)
Quarter: 2014Q2

REPORT INFORMATION
  Report Type: Spontaneous
  Country: US (occurrence: US)
  Receive Date: 20140505
  Receipt Date: 20140626
  Transmission Date: 20141212
  Serious: Yes (Life-Threatening, Hospitalization, Disabling, Other)
  Sender: FDA-Public Use
  Company Number: PHEH2014US008719

PATIENT
  Age: 64 Year
  Sex: Male
  Weight: 79.82 kg

DRUGS (2)
  1. TASIGNA [Suspect]
     Indication: CHRONIC MYELOID LEUKAEMIA
     Dosage: 300 MG, BID
     Route: 048
     Dates: start: 20140318, end: 20140407
  2. ASPIRIN [Concomitant]
     Indication: PLATELET COUNT INCREASED
     Dosage: 81 MG, UNK
     Dates: start: 20140301, end: 20140406

REACTIONS (7)
  - Pituitary haemorrhage [Recovered/Resolved with Sequelae]
  - Pituitary tumour benign [Recovered/Resolved with Sequelae]
  - Subarachnoid haemorrhage [Recovered/Resolved with Sequelae]
  - Visual acuity reduced [Not Recovered/Not Resolved]
  - Visual field defect [Unknown]
  - Hemianopia heteronymous [Unknown]
  - Optic atrophy [Unknown]
